FAERS Safety Report 24276155 (Version 1)
Quarter: 2024Q3

REPORT INFORMATION
  Report Type: Report from Study
  Country: US (occurrence: US)
  Receive Date: 20240903
  Receipt Date: 20240903
  Transmission Date: 20241017
  Serious: Yes (Hospitalization)
  Sender: BAXTER
  Company Number: US-BAXTER-2023BAX025145

PATIENT
  Age: 12 Year
  Sex: Female
  Weight: 38.9 kg

DRUGS (15)
  1. CYCLOPHOSPHAMIDE [Suspect]
     Active Substance: CYCLOPHOSPHAMIDE
     Indication: Acute lymphocytic leukaemia
     Dosage: UNK (FIRST AND LAST DOSE)
     Route: 042
  2. RUXOLITINIB [Suspect]
     Active Substance: RUXOLITINIB
     Indication: Acute lymphocytic leukaemia
     Dosage: 60 MILLIGRAM, BID (INCB018424), FIRST DOSE
     Route: 048
     Dates: start: 20230315, end: 20230326
  3. RUXOLITINIB [Suspect]
     Active Substance: RUXOLITINIB
     Dosage: UNK (INCB018424)
     Route: 048
     Dates: start: 20230329
  4. RUXOLITINIB [Suspect]
     Active Substance: RUXOLITINIB
     Dosage: 60 MILLIGRAM, BID, LAST DOSE PRIOR TO SAE
     Route: 048
     Dates: start: 20230325, end: 20230325
  5. MERCAPTOPURINE [Suspect]
     Active Substance: MERCAPTOPURINE
     Indication: Acute lymphocytic leukaemia
     Dosage: 50 MILLIGRAM, QD (FIRST DOSE)
     Route: 048
     Dates: start: 20230210, end: 20230326
  6. MERCAPTOPURINE [Suspect]
     Active Substance: MERCAPTOPURINE
     Dosage: UNK
     Route: 048
     Dates: start: 20230329
  7. MERCAPTOPURINE [Suspect]
     Active Substance: MERCAPTOPURINE
     Dosage: 50 MILLIGRAM, QD (LAST DOSE PRIOR TO SAE)
     Route: 048
     Dates: start: 20230325, end: 20230325
  8. VINCRISTINE [Suspect]
     Active Substance: VINCRISTINE
     Indication: Acute lymphocytic leukaemia
     Dosage: 1.5 MILLIGRAM/SQ. METER (1.74 MG), FIRST DOSE
     Route: 042
     Dates: start: 20230210, end: 20230315
  9. VINCRISTINE [Suspect]
     Active Substance: VINCRISTINE
     Dosage: 1.5 MILLIGRAM/SQ. METER (1.74 MG), LAST DOSE PRIOR TO SAE
     Route: 042
     Dates: start: 20230315, end: 20230315
  10. METHOTREXATE [Suspect]
     Active Substance: METHOTREXATE
     Indication: Acute lymphocytic leukaemia
     Dosage: 5000 MILLIGRAM/SQ. METER, HD MTX (FIRST DOSE)
     Route: 042
     Dates: start: 20230210
  11. METHOTREXATE [Suspect]
     Active Substance: METHOTREXATE
     Dosage: 15 MILLIGRAM
     Route: 037
     Dates: start: 20230210
  12. METHOTREXATE [Suspect]
     Active Substance: METHOTREXATE
     Dosage: 15 MILLIGRAM, LAST DOSE PRIOR TO SAE
     Route: 037
     Dates: start: 20230315, end: 20230315
  13. METHOTREXATE [Suspect]
     Active Substance: METHOTREXATE
     Dosage: 5000 MILLIGRAM/SQ. METER, HD MTX, LAST DOSE PRIOR TO SAE
     Route: 042
     Dates: start: 20230216, end: 20230216
  14. LEUCOVORIN [Suspect]
     Active Substance: LEUCOVORIN\LEUCOVORIN CALCIUM
     Indication: Acute lymphocytic leukaemia
     Dosage: 15 MILLIGRAM/SQ. METER (17.4 MG) (FIRST DOSE)
     Route: 042
     Dates: start: 20230212, end: 20230318
  15. LEUCOVORIN [Suspect]
     Active Substance: LEUCOVORIN\LEUCOVORIN CALCIUM
     Dosage: 15 MILLIGRAM/SQ. METER (17.4 MG) (LAST DOSE PRIOR TO SAE)
     Route: 042
     Dates: start: 20230318, end: 20230318

REACTIONS (1)
  - Gastroenteritis [Recovered/Resolved]

NARRATIVE: CASE EVENT DATE: 20230326
